FAERS Safety Report 9311822 (Version 1)
Quarter: 2013Q2

REPORT INFORMATION
  Report Type: Report from Study
  Country: MX (occurrence: MX)
  Receive Date: 20130528
  Receipt Date: 20130528
  Transmission Date: 20140414
  Serious: Yes (Other)
  Sender: FDA-Public Use
  Company Number: PHHY2013MX052741

PATIENT
  Age: 19 Year
  Sex: Male

DRUGS (1)
  1. TEGRETOL 200 LC [Suspect]
     Indication: CONVULSION
     Dosage: UNK UKN, UNK
     Route: 048

REACTIONS (1)
  - Head deformity [Not Recovered/Not Resolved]
